FAERS Safety Report 23525391 (Version 3)
Quarter: 2024Q1

REPORT INFORMATION
  Report Type: Report from Study
  Country: US (occurrence: US)
  Receive Date: 20240215
  Receipt Date: 20240226
  Transmission Date: 20240410
  Serious: Yes (Other)
  Sender: FDA-Public Use
  Company Number: US-ABBVIE-5640758

PATIENT
  Sex: Female

DRUGS (1)
  1. VIBERZI [Suspect]
     Active Substance: ELUXADOLINE
     Indication: Product used for unknown indication
     Dosage: FORM STRENGTH 100 MILLIGRAM ?FREQUENCY TEXT : TWICE A DAY AS NEEDED
     Route: 048

REACTIONS (3)
  - Cataract [Recovering/Resolving]
  - Knee arthroplasty [Unknown]
  - Hip arthroplasty [Unknown]
